FAERS Safety Report 15501021 (Version 8)
Quarter: 2019Q2

REPORT INFORMATION
  Report Type: Report from Study
  Country: CN (occurrence: CN)
  Receive Date: 20181015
  Receipt Date: 20190424
  Transmission Date: 20190711
  Serious: Yes (Life-Threatening, Hospitalization, Other)
  Sender: FDA-Public Use
  Company Number: CN-B.I. PHARMACEUTICALS,INC./RIDGEFIELD-2018-BI-050061

PATIENT
  Age: 64 Year
  Sex: Male
  Weight: 63 kg

DRUGS (32)
  1. LIPITOR [Concomitant]
     Active Substance: ATORVASTATIN CALCIUM
     Indication: PRODUCT USED FOR UNKNOWN INDICATION
     Route: 065
     Dates: start: 20181004, end: 20181008
  2. WARFARIN SODIUM. [Concomitant]
     Active Substance: WARFARIN SODIUM
     Indication: PROPHYLAXIS
     Route: 065
     Dates: start: 20181013, end: 20181026
  3. PRADAXA [Suspect]
     Active Substance: DABIGATRAN ETEXILATE MESYLATE
     Route: 048
     Dates: start: 20181027, end: 20181108
  4. HEPARIN [Suspect]
     Active Substance: HEPARIN SODIUM
     Indication: PRODUCT USED FOR UNKNOWN INDICATION
     Route: 065
  5. HUMAN ALBUMIN [Concomitant]
     Active Substance: ALBUMIN HUMAN
     Indication: PROPHYLAXIS
     Route: 065
     Dates: start: 20181008, end: 20181010
  6. PROPOFOL. [Concomitant]
     Active Substance: PROPOFOL
     Indication: PROPHYLAXIS
     Route: 065
     Dates: start: 20181008, end: 20181009
  7. PROPAFENONE HYDROCHLORIDE. [Concomitant]
     Active Substance: PROPAFENONE HYDROCHLORIDE
     Indication: PROPHYLAXIS
     Route: 065
     Dates: start: 20181011
  8. BIVALIRUDIN. [Concomitant]
     Active Substance: BIVALIRUDIN
     Indication: PROPHYLAXIS
     Route: 065
     Dates: start: 20181011, end: 20181015
  9. ATORVASTATIN CALCIUM. [Concomitant]
     Active Substance: ATORVASTATIN CALCIUM
     Indication: PROPHYLAXIS
     Route: 065
     Dates: end: 20181008
  10. PRADAXA [Suspect]
     Active Substance: DABIGATRAN ETEXILATE MESYLATE
     Indication: ATRIAL FIBRILLATION
     Route: 048
     Dates: start: 20180925, end: 20181007
  11. ACARBOSE. [Concomitant]
     Active Substance: ACARBOSE
     Indication: DIABETES MELLITUS
     Route: 065
     Dates: start: 20181004, end: 20181008
  12. VANCOMYCIN HYDROCHLORIDE. [Concomitant]
     Active Substance: VANCOMYCIN HYDROCHLORIDE
     Indication: PROPHYLAXIS
     Route: 065
     Dates: start: 20181008, end: 20181013
  13. NORADRENALINE BITARTRATE [Concomitant]
     Indication: PROPHYLAXIS
     Route: 065
     Dates: start: 20181008, end: 20181008
  14. METFORMIN [Concomitant]
     Active Substance: METFORMIN HYDROCHLORIDE
     Indication: PRODUCT USED FOR UNKNOWN INDICATION
     Route: 065
  15. GLICLAZIDE [Concomitant]
     Active Substance: GLICLAZIDE
     Route: 065
     Dates: start: 20181012
  16. FUROSEMIDE. [Concomitant]
     Active Substance: FUROSEMIDE
     Indication: PROPHYLAXIS
     Route: 065
     Dates: start: 20180909, end: 20181010
  17. BENZYLPENICILLIN SODIUM [Concomitant]
     Active Substance: PENICILLIN G SODIUM
     Indication: PROPHYLAXIS
     Route: 065
     Dates: start: 20181011, end: 20181011
  18. CHLORHEXIDINE GLUCONATE. [Concomitant]
     Active Substance: CHLORHEXIDINE GLUCONATE
     Indication: PROPHYLAXIS
     Dosage: COMPOUND GARGLE SOLUTION
     Route: 065
     Dates: start: 20181009, end: 20181009
  19. REMIFENTANIL HYDROCHLORIDE. [Concomitant]
     Active Substance: REMIFENTANIL HYDROCHLORIDE
     Indication: PROPHYLAXIS
     Route: 065
     Dates: start: 20181009, end: 20181009
  20. HYDROTALCITE [Concomitant]
     Active Substance: HYDROTALCITE
     Indication: PROPHYLAXIS
     Route: 065
     Dates: start: 20181014, end: 20181026
  21. METOPROLOL TARTRATE. [Concomitant]
     Active Substance: METOPROLOL TARTRATE
     Indication: PROPHYLAXIS
     Route: 065
     Dates: start: 20181024
  22. LANSOPRAZOLE. [Concomitant]
     Active Substance: LANSOPRAZOLE
     Indication: PROPHYLAXIS
     Route: 065
     Dates: end: 20181008
  23. PRAXBIND [Suspect]
     Active Substance: IDARUCIZUMAB
     Indication: PRODUCT USED FOR UNKNOWN INDICATION
     Route: 042
     Dates: start: 20181008
  24. GLICLAZIDE [Concomitant]
     Active Substance: GLICLAZIDE
     Indication: DIABETES MELLITUS
     Dosage: SUSTAINED/MODIFIED RELEASE TABLET
     Route: 065
     Dates: start: 2013, end: 20181008
  25. SUCCINYLATED GELATIN [Concomitant]
     Active Substance: SUCCINYLATED GELATIN
     Indication: PROPHYLAXIS
     Route: 065
     Dates: start: 20181008, end: 20181009
  26. AMIODARON HCL [Concomitant]
     Active Substance: AMIODARONE HYDROCHLORIDE
     Indication: PROPHYLAXIS
     Route: 065
     Dates: start: 20181011, end: 20181011
  27. LEVOGLUTAMIDE W/SODIUM GUALENATE [Concomitant]
     Active Substance: GLUTAMINE\SODIUM GUALENATE
     Indication: PROPHYLAXIS
     Dosage: DOSE: 0.67 AND DAILY DOSE: 2.01
     Route: 065
     Dates: start: 20181004, end: 20181008
  28. MELBINE [Concomitant]
     Indication: PRODUCT USED FOR UNKNOWN INDICATION
     Dosage: DOSE: 0.5 AND DAILY DOSE: 0.5
     Route: 065
     Dates: start: 2013, end: 20181004
  29. ACARBOSE. [Concomitant]
     Active Substance: ACARBOSE
     Route: 065
     Dates: start: 20181012
  30. ESOMEPRAZOLE MAGNESIUM. [Concomitant]
     Active Substance: ESOMEPRAZOLE MAGNESIUM
     Indication: PROPHYLAXIS
     Dosage: ENTERIC-COATED TABLET
     Route: 065
     Dates: start: 20181014
  31. POTASSIUM CHLORIDE. [Concomitant]
     Active Substance: POTASSIUM CHLORIDE
     Indication: PROPHYLAXIS
     Dosage: SUSTAINED-RELEASE TABLET
     Route: 065
     Dates: start: 20181009, end: 20181015
  32. TAKEPRON [Concomitant]
     Active Substance: LANSOPRAZOLE
     Indication: PRODUCT USED FOR UNKNOWN INDICATION
     Route: 065
     Dates: start: 20181004, end: 20181008

REACTIONS (10)
  - Blood pressure decreased [Recovered/Resolved]
  - Herpes simplex [Unknown]
  - Urachal abnormality [Recovered/Resolved]
  - Lung infection [Unknown]
  - Constipation [Unknown]
  - Pneumothorax [Recovered/Resolved]
  - Post procedural haemorrhage [Recovered/Resolved]
  - Pericardial haemorrhage [Unknown]
  - Nausea [Unknown]
  - Cardiac ablation [Unknown]

NARRATIVE: CASE EVENT DATE: 201810
